FAERS Safety Report 20827741 (Version 3)
Quarter: 2022Q2

REPORT INFORMATION
  Report Type: Spontaneous
  Country: US (occurrence: US)
  Receive Date: 20220513
  Receipt Date: 20220606
  Transmission Date: 20220721
  Serious: Yes (Other)
  Sender: FDA-Public Use
  Company Number: US-PROGENICS PHARMACEUTICALS/LANTHEUS HOLDINGS-LMI-2022-00506

PATIENT
  Age: 58 Year
  Sex: Female
  Weight: 103 kg

DRUGS (6)
  1. AZEDRA [Suspect]
     Active Substance: IOBENGUANE I-131
     Indication: Phaeochromocytoma
     Dosage: UNK
     Route: 042
     Dates: start: 20211213, end: 20211213
  2. AZEDRA [Suspect]
     Active Substance: IOBENGUANE I-131
     Dosage: 495 MILLICURIE
     Route: 042
     Dates: start: 20220118, end: 20220118
  3. AZEDRA [Suspect]
     Active Substance: IOBENGUANE I-131
     Dosage: 475 MILLICURIE
     Route: 042
     Dates: start: 20220418, end: 20220418
  4. METOPROLOL [Concomitant]
     Active Substance: METOPROLOL
     Indication: Product used for unknown indication
  5. DOXAZOSIN MESYLATE [Concomitant]
     Active Substance: DOXAZOSIN MESYLATE
     Indication: Product used for unknown indication
  6. GABAPENTIN [Concomitant]
     Active Substance: GABAPENTIN
     Indication: Product used for unknown indication

REACTIONS (10)
  - Disease progression [Unknown]
  - Platelet count decreased [Recovering/Resolving]
  - Anaemia [Recovered/Resolved]
  - Food aversion [Unknown]
  - Fatigue [Recovering/Resolving]
  - Nausea [Unknown]
  - Constipation [Recovered/Resolved]
  - Diarrhoea [Recovered/Resolved]
  - Fatigue [Recovered/Resolved]
  - Decreased appetite [Recovered/Resolved]

NARRATIVE: CASE EVENT DATE: 20220118
